FAERS Safety Report 9747780 (Version 1)
Quarter: 2013Q4

REPORT INFORMATION
  Report Type: Spontaneous
  Country: CA (occurrence: None)
  Receive Date: 20131211
  Receipt Date: 20131211
  Transmission Date: 20140711
  Serious: Yes (Hospitalization, Disabling, Other)
  Sender: FDA-Public Use
  Company Number: None

PATIENT
  Age: 22 Year
  Sex: Female
  Weight: 67.13 kg

DRUGS (3)
  1. INVEGA [Suspect]
     Indication: SCHIZOPHRENIA
     Dates: start: 20131115, end: 20131025
  2. TOPIRATE [Concomitant]
  3. CLONAZEPAM [Concomitant]

REACTIONS (6)
  - Skin exfoliation [None]
  - Dyskinesia [None]
  - Dyskinesia [None]
  - Dyskinesia [None]
  - Insomnia [None]
  - Restlessness [None]
